FAERS Safety Report 15339054 (Version 1)
Quarter: 2018Q3

REPORT INFORMATION
  Report Type: Spontaneous
  Country: HR (occurrence: HR)
  Receive Date: 20180831
  Receipt Date: 20180831
  Transmission Date: 20181010
  Serious: Yes (Hospitalization)
  Sender: FDA-Public Use
  Company Number: HR-PFIZER INC-2018349088

PATIENT
  Age: 17 Month
  Sex: Female

DRUGS (3)
  1. FENISTIL [Concomitant]
     Active Substance: DIMETHINDENE
     Dosage: 12 GTT, 1X/DAY
     Route: 048
  2. SOLU?MEDROL [Suspect]
     Active Substance: METHYLPREDNISOLONE SODIUM SUCCINATE
     Indication: HYPERSENSITIVITY
     Dosage: 15 MG, 1X/DAY
     Route: 030
     Dates: start: 20180721, end: 20180721
  3. LACTOSE [Suspect]
     Active Substance: LACTOSE
     Dosage: UNK
     Route: 030
     Dates: start: 20180721, end: 20180721

REACTIONS (5)
  - Contraindicated product administered [Recovered/Resolved]
  - Skin oedema [Recovered/Resolved]
  - Urticaria [Recovered/Resolved]
  - Condition aggravated [Recovered/Resolved]
  - Skin reaction [Recovered/Resolved]

NARRATIVE: CASE EVENT DATE: 20180721
